FAERS Safety Report 25515895 (Version 1)
Quarter: 2025Q3

REPORT INFORMATION
  Report Type: Spontaneous
  Country: US (occurrence: US)
  Receive Date: 20250704
  Receipt Date: 20250704
  Transmission Date: 20251021
  Serious: No
  Sender: RADIUS PHARM
  Company Number: US-RADIUS HEALTH INC.-2025US001139

PATIENT
  Sex: Male

DRUGS (1)
  1. TYMLOS [Suspect]
     Active Substance: ABALOPARATIDE
     Indication: Senile osteoporosis
     Route: 058

REACTIONS (6)
  - Joint swelling [Unknown]
  - Abdominal distension [Unknown]
  - Feeling jittery [Unknown]
  - Feeling abnormal [Unknown]
  - Feeling of body temperature change [Unknown]
  - Peripheral swelling [Unknown]
